FAERS Safety Report 11483788 (Version 1)
Quarter: 2015Q3

REPORT INFORMATION
  Report Type: Spontaneous
  Country: US (occurrence: US)
  Receive Date: 20150903
  Receipt Date: 20150903
  Transmission Date: 20151125
  Serious: No
  Sender: FDA-Public Use
  Company Number: US-ELI_LILLY_AND_COMPANY-US201205007078

PATIENT
  Sex: Female

DRUGS (4)
  1. XANAX [Concomitant]
     Active Substance: ALPRAZOLAM
  2. CYMBALTA [Suspect]
     Active Substance: DULOXETINE HYDROCHLORIDE
     Indication: DEPRESSION
     Dosage: 60MG, TWO, IN AM
     Dates: start: 201110
  3. ABILIFY [Concomitant]
     Active Substance: ARIPIPRAZOLE
  4. LORTAB [Concomitant]
     Active Substance: ACETAMINOPHEN\HYDROCODONE BITARTRATE

REACTIONS (16)
  - Paraesthesia [Unknown]
  - Anger [Unknown]
  - Malaise [Unknown]
  - Cough [Unknown]
  - Anxiety [Unknown]
  - Pharyngitis streptococcal [Not Recovered/Not Resolved]
  - Nausea [Unknown]
  - Vomiting [Unknown]
  - Hyperhidrosis [Unknown]
  - Contusion [Unknown]
  - Deafness [Recovered/Resolved]
  - Drug withdrawal syndrome [Not Recovered/Not Resolved]
  - Hot flush [Unknown]
  - Irritability [Unknown]
  - Decreased appetite [Unknown]
  - Insomnia [Unknown]
